FAERS Safety Report 9812367 (Version 1)
Quarter: 2014Q1

REPORT INFORMATION
  Report Type: Report from Study
  Country: GB (occurrence: GB)
  Receive Date: 20140113
  Receipt Date: 20140113
  Transmission Date: 20141002
  Serious: Yes (Death)
  Sender: FDA-Public Use
  Company Number: GB-ROCHE-1332161

PATIENT
  Age: 80 Year
  Sex: Male
  Weight: 57 kg

DRUGS (1)
  1. RITUXIMAB [Suspect]
     Indication: RHEUMATOID ARTHRITIS
     Route: 065
     Dates: start: 20120713

REACTIONS (5)
  - Death [Fatal]
  - Cardiac failure congestive [Fatal]
  - Myocardial ischaemia [Fatal]
  - Renal impairment [Fatal]
  - Emphysema [Fatal]
